FAERS Safety Report 13342817 (Version 1)
Quarter: 2017Q1

REPORT INFORMATION
  Report Type: Spontaneous
  Country: JP (occurrence: JP)
  Receive Date: 20170316
  Receipt Date: 20170316
  Transmission Date: 20170428
  Serious: Yes (Hospitalization)
  Sender: FDA-Public Use
  Company Number: JP-TEVA-2017-JP-000709J

PATIENT
  Age: 85 Year
  Sex: Female

DRUGS (1)
  1. FUROSEMIDE TABLET 40MG TEVA [Suspect]
     Active Substance: FUROSEMIDE
     Indication: PRODUCT USED FOR UNKNOWN INDICATION
     Route: 048

REACTIONS (2)
  - Electrocardiogram QT prolonged [Unknown]
  - Fall [Unknown]
